FAERS Safety Report 16424355 (Version 1)
Quarter: 2019Q2

REPORT INFORMATION
  Report Type: Spontaneous
  Country: GB (occurrence: GB)
  Receive Date: 20190613
  Receipt Date: 20190613
  Transmission Date: 20190711
  Serious: Yes (Hospitalization)
  Sender: FDA-Public Use
  Company Number: GB-ACCORD-132420

PATIENT
  Age: 26 Year
  Sex: Female
  Weight: 70.9 kg

DRUGS (7)
  1. PERTUZUMAB. [Suspect]
     Active Substance: PERTUZUMAB
     Indication: BREAST CANCER
     Dosage: 4TH CYCLE
     Route: 042
     Dates: start: 20190215, end: 20190215
  2. MEROPENEM. [Concomitant]
     Active Substance: MEROPENEM
     Route: 042
  3. DOCETAXEL. [Suspect]
     Active Substance: DOCETAXEL
     Indication: BREAST CANCER
     Dosage: 4TH CYCLE
     Route: 042
     Dates: start: 20190215, end: 20190215
  4. FILGRASTIM [Concomitant]
     Active Substance: FILGRASTIM
  5. EPIRUBICIN [Concomitant]
     Active Substance: EPIRUBICIN
     Dosage: 3 CYCLES
  6. CYCLOPHOSPHAMIDE/CYCLOPHOSPHAMIDE MONOHYDRATE [Concomitant]
     Dosage: 3 CYCLES
     Dates: start: 20181213, end: 20190124
  7. TRASTUZUMAB. [Suspect]
     Active Substance: TRASTUZUMAB
     Indication: APOCRINE BREAST CARCINOMA
     Dosage: 4TH CYCLE
     Route: 042
     Dates: start: 20190215

REACTIONS (9)
  - Vomiting [Unknown]
  - Oesophagitis [Recovering/Resolving]
  - Diarrhoea [Unknown]
  - Gastritis [Recovered/Resolved]
  - Myalgia [Unknown]
  - Nausea [Unknown]
  - Abdominal pain [Unknown]
  - Fatigue [Unknown]
  - Pyrexia [Unknown]

NARRATIVE: CASE EVENT DATE: 20190216
